FAERS Safety Report 5343881-X (Version None)
Quarter: 2007Q2

REPORT INFORMATION
  Report Type: 
  Country: None (occurrence: None)
  Receive Date: 20070531
  Receipt Date: 20070531
  Transmission Date: 20071010
  Serious: Yes (Other)
  Sender: FDA-Public Use
  Company Number: None

PATIENT
  Age: 56 Year
  Sex: Male
  Weight: 88.905 kg

DRUGS (1)
  1. FLUCONAZOLE [Suspect]
     Indication: SINUSITIS FUNGAL
     Dosage: 1 TABLET DAILY PO
     Route: 048
     Dates: start: 20070524, end: 20070527

REACTIONS (2)
  - DYSPHAGIA [None]
  - DYSPNOEA [None]
